FAERS Safety Report 6827370-9 (Version None)
Quarter: 2010Q3

REPORT INFORMATION
  Report Type: 
  Country: None (occurrence: None)
  Receive Date: 20100709
  Receipt Date: 20070110
  Transmission Date: 20110219
  Serious: No
  Sender: FDA-Public Use
  Company Number: US-PFIZER INC-2007004559

PATIENT
  Sex: Female
  Weight: 61.23 kg

DRUGS (4)
  1. CHANTIX [Suspect]
     Indication: SMOKING CESSATION THERAPY
     Dates: start: 20061201
  2. WELLBUTRIN [Interacting]
     Indication: SMOKING CESSATION THERAPY
  3. WELLBUTRIN [Interacting]
     Indication: DEPRESSION
  4. ADVAIR DISKUS 100/50 [Concomitant]
     Indication: EMPHYSEMA

REACTIONS (3)
  - DRUG INEFFECTIVE [None]
  - DRUG INTERACTION [None]
  - DRUG TOLERANCE [None]
